FAERS Safety Report 7377143-6 (Version None)
Quarter: 2011Q1

REPORT INFORMATION
  Report Type: 
  Country: None (occurrence: None)
  Receive Date: 20110328
  Receipt Date: 20110318
  Transmission Date: 20110831
  Serious: No
  Sender: FDA-Public Use
  Company Number: US-BIOGENIDEC-2011BI010538

PATIENT
  Sex: Female

DRUGS (2)
  1. TYSABRI [Suspect]
     Route: 042
     Dates: start: 20070713, end: 20100210
  2. TYSABRI [Suspect]
     Indication: MULTIPLE SCLEROSIS
     Route: 042
     Dates: start: 20100629

REACTIONS (5)
  - NECK PAIN [None]
  - VISION BLURRED [None]
  - MIGRAINE [None]
  - SUICIDAL IDEATION [None]
  - HALLUCINATION, VISUAL [None]
